FAERS Safety Report 17366347 (Version 1)
Quarter: 2020Q1

REPORT INFORMATION
  Report Type: Spontaneous
  Country: US (occurrence: US)
  Receive Date: 20200204
  Receipt Date: 20200204
  Transmission Date: 20200409
  Serious: No
  Sender: FDA-Public Use
  Company Number: US-SA-2020SA026087

PATIENT
  Age: 43 Year
  Sex: Male

DRUGS (8)
  1. MONTELUKAST [Concomitant]
     Active Substance: MONTELUKAST SODIUM
  2. CEFDINIR. [Concomitant]
     Active Substance: CEFDINIR
  3. APAP CODEINE [Concomitant]
  4. BREO ELLIPTA [Concomitant]
     Active Substance: FLUTICASONE FUROATE\VILANTEROL TRIFENATATE
  5. METHOCARBAMOL. [Concomitant]
     Active Substance: METHOCARBAMOL
  6. DUPIXENT [Suspect]
     Active Substance: DUPILUMAB
     Indication: DERMATITIS ATOPIC
     Dosage: 300 MG, QOW
     Route: 058
     Dates: start: 20191109
  7. DOXYCYCLINE. [Concomitant]
     Active Substance: DOXYCYCLINE
  8. IMIQUIMOD. [Concomitant]
     Active Substance: IMIQUIMOD

REACTIONS (2)
  - Oropharyngeal pain [Not Recovered/Not Resolved]
  - Nasopharyngitis [Not Recovered/Not Resolved]
